FAERS Safety Report 16690718 (Version 1)
Quarter: 2019Q3

REPORT INFORMATION
  Report Type: Report from Study
  Country: DE (occurrence: DE)
  Receive Date: 20190811
  Receipt Date: 20190811
  Transmission Date: 20191004
  Serious: Yes (Death, Hospitalization)
  Sender: FDA-Public Use
  Company Number: PHHO2016DE008285

PATIENT
  Age: 64 Year
  Sex: Male
  Weight: 118 kg

DRUGS (9)
  1. LANTUS [Concomitant]
     Active Substance: INSULIN GLARGINE
     Indication: DIABETES MELLITUS
     Dosage: 4 IE X 1
     Route: 058
     Dates: start: 20120802, end: 20120814
  2. VFEND [Concomitant]
     Active Substance: VORICONAZOLE
     Indication: PYREXIA
     Dosage: 200 MG, BID
     Route: 048
     Dates: start: 20120809, end: 20120814
  3. VERGENTAN [Concomitant]
     Active Substance: ALIZAPRIDE HYDROCHLORIDE
     Indication: NAUSEA
     Dosage: 50 MG, QD
     Route: 048
     Dates: start: 20120804, end: 20120814
  4. CYTARABINE. [Suspect]
     Active Substance: CYTARABINE
     Indication: ACUTE MYELOID LEUKAEMIA
     Dosage: 440 MG, (DAY 1 TO 7)
     Route: 042
     Dates: start: 20120802, end: 20120808
  5. ACTRAPID [Concomitant]
     Active Substance: INSULIN HUMAN
     Indication: DIABETES MELLITUS
     Dosage: 100 IE X 1
     Route: 058
     Dates: start: 20120802, end: 20120814
  6. DAUNORUBICIN [Suspect]
     Active Substance: DAUNORUBICIN
     Indication: ACUTE MYELOID LEUKAEMIA
     Dosage: 130 MG, (DAY 2 TO 4)
     Route: 042
     Dates: start: 20120803, end: 20120805
  7. MIDOSTAURIN [Suspect]
     Active Substance: MIDOSTAURIN
     Indication: ACUTE MYELOID LEUKAEMIA
     Dosage: 50 MG, BID
     Route: 048
     Dates: start: 20120813, end: 20120814
  8. ALLOPURINOL. [Concomitant]
     Active Substance: ALLOPURINOL
     Indication: PROPHYLAXIS
     Dosage: 300 MG, BID
     Route: 048
     Dates: start: 20120802, end: 20120814
  9. TYGACIL [Concomitant]
     Active Substance: TIGECYCLINE
     Indication: PYREXIA
     Dosage: 50 MG, BID
     Route: 042
     Dates: start: 20120810, end: 20120814

REACTIONS (3)
  - Multiple organ dysfunction syndrome [Fatal]
  - Hepatotoxicity [Not Recovered/Not Resolved]
  - Septic shock [Fatal]

NARRATIVE: CASE EVENT DATE: 20120814
